FAERS Safety Report 23943720 (Version 1)
Quarter: 2024Q2

REPORT INFORMATION
  Report Type: Spontaneous
  Country: US (occurrence: US)
  Receive Date: 20240606
  Receipt Date: 20240606
  Transmission Date: 20240715
  Serious: Yes (Hospitalization)
  Sender: FDA-Public Use
  Company Number: US-STRIDES ARCOLAB LIMITED-2024SP006481

PATIENT
  Age: 67 Year
  Sex: Male

DRUGS (5)
  1. LEVETIRACETAM [Suspect]
     Active Substance: LEVETIRACETAM
     Indication: Seizure
     Dosage: UNK
     Route: 065
  2. OLOROFIM [Concomitant]
     Active Substance: OLOROFIM
     Indication: Central nervous system fungal infection
     Dosage: 90 MILLIGRAM, BID
     Route: 065
  3. OLOROFIM [Concomitant]
     Active Substance: OLOROFIM
     Indication: Coccidioidomycosis
     Dosage: 30 MILLIGRAM, BID
     Route: 065
  4. ITRACONAZOLE [Concomitant]
     Active Substance: ITRACONAZOLE
     Indication: Central nervous system fungal infection
     Dosage: UNK
     Route: 065
  5. ITRACONAZOLE [Concomitant]
     Active Substance: ITRACONAZOLE
     Indication: Coccidioidomycosis

REACTIONS (1)
  - Drug ineffective [Unknown]
